FAERS Safety Report 15694824 (Version 1)
Quarter: 2018Q4

REPORT INFORMATION
  Report Type: Spontaneous
  Country: IL (occurrence: IL)
  Receive Date: 20181206
  Receipt Date: 20181206
  Transmission Date: 20190205
  Serious: Yes (Death, Hospitalization, Other)
  Sender: FDA-Public Use
  Company Number: IL-TEVA-2018-IL-985173

PATIENT
  Sex: Male

DRUGS (4)
  1. KYPROLIS [Suspect]
     Active Substance: CARFILZOMIB
     Indication: PLASMA CELL MYELOMA
     Dosage: 15 D 3 C
     Route: 065
     Dates: start: 20180715, end: 20180925
  2. CYTOXAN [Suspect]
     Active Substance: CYCLOPHOSPHAMIDE
     Indication: PLASMA CELL MYELOMA
     Route: 065
  3. ZOVIRAX [Suspect]
     Active Substance: ACYCLOVIR
     Indication: MENINGOENCEPHALITIS HERPETIC
     Route: 065
  4. DEXACORT [Suspect]
     Active Substance: DEXAMETHASONE SODIUM PHOSPHATE
     Indication: PLASMA CELL MYELOMA
     Route: 065

REACTIONS (5)
  - Off label use [Unknown]
  - Meningoencephalitis herpetic [Unknown]
  - Pneumonia [Fatal]
  - Septic shock [Fatal]
  - Neutropenia [Fatal]

NARRATIVE: CASE EVENT DATE: 2018
